FAERS Safety Report 21435761 (Version 1)
Quarter: 2022Q4

REPORT INFORMATION
  Report Type: Spontaneous
  Country: TN (occurrence: TN)
  Receive Date: 20221010
  Receipt Date: 20221010
  Transmission Date: 20230113
  Serious: Yes (Other)
  Sender: FDA-Public Use
  Company Number: TN-GLAXOSMITHKLINE-TN2022GSK142808

PATIENT

DRUGS (3)
  1. ALBUTEROL [Suspect]
     Active Substance: ALBUTEROL
     Indication: Asthma
     Dosage: 2 MG
  2. CAPTOPRIL [Concomitant]
     Active Substance: CAPTOPRIL
     Indication: Hypertension
     Dosage: UNK
  3. THEOPHYLLINE [Concomitant]
     Active Substance: THEOPHYLLINE
     Indication: Asthma
     Dosage: 100 MG, 1D

REACTIONS (17)
  - Erythema multiforme [Recovered/Resolved]
  - Oral mucosal erythema [Recovered/Resolved]
  - Oral discomfort [Recovered/Resolved]
  - Mouth ulceration [Recovered/Resolved]
  - Feeding disorder [Recovered/Resolved]
  - Peptic ulcer [Recovered/Resolved]
  - Dysphagia [Recovered/Resolved]
  - Oral disorder [Recovered/Resolved]
  - Chapped lips [Recovered/Resolved]
  - Mucosal erosion [Recovered/Resolved]
  - Skin fissures [Recovered/Resolved]
  - Lip scab [Recovered/Resolved]
  - Oral mucosa erosion [Recovered/Resolved]
  - Lip erosion [Recovered/Resolved]
  - Tongue discomfort [Recovered/Resolved]
  - Palatal disorder [Recovered/Resolved]
  - Oral mucosal blistering [Recovered/Resolved]
